FAERS Safety Report 25444156 (Version 2)
Quarter: 2025Q4

REPORT INFORMATION
  Report Type: Spontaneous
  Country: US (occurrence: None)
  Receive Date: 20250617
  Receipt Date: 20251027
  Transmission Date: 20260118
  Serious: No
  Sender: UCB
  Company Number: US-UCBSA-2025023366

PATIENT
  Age: 54 Year

DRUGS (2)
  1. BIMZELX [Suspect]
     Active Substance: BIMEKIZUMAB-BKZX
     Indication: Ankylosing spondylitis
     Dosage: 160 MILLIGRAM, EV 4 WEEKS
  2. Ibuprefon [Concomitant]
     Indication: Pain
     Dosage: 800 MILLIGRAM, EV 2 DAYS (QOD)

REACTIONS (2)
  - Device issue [Unknown]
  - Product dose omission issue [Unknown]
